FAERS Safety Report 23010987 (Version 4)
Quarter: 2023Q4

REPORT INFORMATION
  Report Type: Report from Study
  Country: US (occurrence: None)
  Receive Date: 20230929
  Receipt Date: 20231213
  Transmission Date: 20240109
  Serious: Yes (Death, Other)
  Sender: FDA-Public Use
  Company Number: 2023A180444

PATIENT
  Age: 81 Year
  Sex: Male

DRUGS (1)
  1. TAGRISSO [Suspect]
     Active Substance: OSIMERTINIB
     Indication: Lung cancer metastatic
     Dosage: 40.0MG UNKNOWN
     Route: 048
     Dates: start: 20220301, end: 20230801

REACTIONS (7)
  - Pulmonary oedema [Fatal]
  - Peripheral swelling [Unknown]
  - Dyspnoea [Unknown]
  - Rectal discharge [Unknown]
  - COVID-19 [Unknown]
  - Chest pain [Unknown]
  - Drug ineffective [Unknown]

NARRATIVE: CASE EVENT DATE: 20230719
